FAERS Safety Report 14273496 (Version 3)
Quarter: 2018Q2

REPORT INFORMATION
  Report Type: Spontaneous
  Country: US (occurrence: US)
  Receive Date: 20171212
  Receipt Date: 20180606
  Transmission Date: 20180711
  Serious: No
  Sender: FDA-Public Use
  Company Number: US-PFIZER INC-2017526052

PATIENT
  Age: 70 Year
  Sex: Female

DRUGS (41)
  1. DOCETAXEL. [Suspect]
     Active Substance: DOCETAXEL
     Indication: CHEMOTHERAPY
     Dosage: 144 MG, EVERY 3 WEEKS (06 CYCLES)
     Dates: start: 20150204, end: 20150610
  2. DOCETAXEL. [Suspect]
     Active Substance: DOCETAXEL
     Indication: BREAST CANCER FEMALE
  3. COQ10 [Concomitant]
     Active Substance: UBIDECARENONE
     Dosage: UNK
     Dates: start: 2010
  4. CYTOXAN [Concomitant]
     Active Substance: CYCLOPHOSPHAMIDE
     Indication: CHEMOTHERAPY
     Dosage: UNK
  5. LEXAPRO [Concomitant]
     Active Substance: ESCITALOPRAM OXALATE
     Dosage: UNK
  6. DULCOLAX NOS [Concomitant]
     Active Substance: BISACODYL OR DOCUSATE SODIUM
     Dosage: UNK
  7. GARCINIA CAMBOGIA [Concomitant]
     Active Substance: HERBALS\GARCINIA CAMBOGIA FRUIT
     Dosage: UNK
     Dates: start: 2010
  8. MOTRIN [Concomitant]
     Active Substance: IBUPROFEN
     Dosage: AS NEEDED
  9. NEOSAR [Concomitant]
     Active Substance: CYCLOPHOSPHAMIDE
     Indication: CHEMOTHERAPY
     Dosage: UNK
  10. COLACE [Concomitant]
     Active Substance: DOCUSATE SODIUM
     Dosage: UNK
  11. TRAZODONE [Concomitant]
     Active Substance: TRAZODONE HYDROCHLORIDE
     Dosage: UNK
  12. PROCHLORPERAZINE. [Concomitant]
     Active Substance: PROCHLORPERAZINE
     Dosage: UNK
  13. CHONDROITIN [Concomitant]
     Active Substance: CHONDROITIN
     Dosage: UNK
  14. VITAMIN C [Concomitant]
     Active Substance: ASCORBIC ACID
     Dosage: UNK
     Dates: start: 2010
  15. HYDROCODONE [Concomitant]
     Active Substance: HYDROCODONE
     Dosage: UNK
  16. HYDROMORPHONE [Concomitant]
     Active Substance: HYDROMORPHONE
     Dosage: UNK
  17. PANTOPRAZOLE [Concomitant]
     Active Substance: PANTOPRAZOLE
     Dosage: UNK
  18. CLARITIN [Concomitant]
     Active Substance: LORATADINE
     Dosage: UNK
  19. ZYRTEC [Concomitant]
     Active Substance: CETIRIZINE HYDROCHLORIDE
     Dosage: UNK
  20. TURMERIC [Concomitant]
     Active Substance: HERBALS\TURMERIC
     Dosage: UNK
  21. LISINOPRIL. [Concomitant]
     Active Substance: LISINOPRIL
     Dosage: UNK
     Dates: start: 2007
  22. POTASSIUM GLUCONATE [Concomitant]
     Active Substance: POTASSIUM GLUCONATE
     Dosage: UNK
     Dates: start: 2009
  23. EXCEDRIN [Concomitant]
     Active Substance: ACETAMINOPHEN\ASPIRIN\CAFFEINE
     Dosage: AS NEEDED
  24. ONDANSETRON [Concomitant]
     Active Substance: ONDANSETRON
     Dosage: UNK
  25. BENZONATATE. [Concomitant]
     Active Substance: BENZONATATE
     Dosage: UNK
  26. VITAMIN B12 [Concomitant]
     Active Substance: CYANOCOBALAMIN
     Dosage: UNK
  27. VITAMIN D3 [Concomitant]
     Active Substance: CHOLECALCIFEROL
     Dosage: UNK
  28. LEVOTHYROXINE. [Concomitant]
     Active Substance: LEVOTHYROXINE
     Dosage: UNK
     Dates: start: 2007
  29. GLUCOSAMINE [Concomitant]
     Active Substance: GLUCOSAMINE
     Dosage: UNK
     Dates: start: 2010
  30. LORAZEPAM. [Concomitant]
     Active Substance: LORAZEPAM
     Dosage: UNK
  31. MAGNESIUM [Concomitant]
     Active Substance: MAGNESIUM
     Dosage: UNK
     Dates: start: 2007
  32. AMBIEN [Concomitant]
     Active Substance: ZOLPIDEM TARTRATE
     Dosage: UNK
     Dates: start: 201501, end: 2015
  33. TAXOTERE [Suspect]
     Active Substance: DOCETAXEL
     Indication: CHEMOTHERAPY
     Dosage: UNK
     Dates: start: 20150204, end: 20150610
  34. LIOTHYRONINE [Concomitant]
     Active Substance: LIOTHYRONINE
     Dosage: UNK
     Dates: start: 2007
  35. VALACYCLOVIR [Concomitant]
     Active Substance: VALACYCLOVIR HYDROCHLORIDE
     Dosage: UNK
     Dates: start: 2015
  36. ATIVAN [Suspect]
     Active Substance: LORAZEPAM
  37. DYMISTA [Concomitant]
     Active Substance: AZELASTINE HYDROCHLORIDE\FLUTICASONE PROPIONATE
     Dosage: UNK
  38. NIACINAMIDE [Concomitant]
     Active Substance: NIACINAMIDE
     Dosage: UNK
     Dates: start: 2010
  39. PROBIOTIC 10 [Concomitant]
     Dosage: UNK
     Dates: start: 2012
  40. CURCUMIN [Concomitant]
     Active Substance: CURCUMIN
     Dosage: UNK
     Dates: start: 2010
  41. L LYSINE [Concomitant]
     Dosage: UNK
     Dates: start: 2010

REACTIONS (5)
  - Madarosis [Unknown]
  - Hair disorder [Unknown]
  - Alopecia [Unknown]
  - Hair colour changes [Unknown]
  - Hair texture abnormal [Unknown]

NARRATIVE: CASE EVENT DATE: 201512
